FAERS Safety Report 9681137 (Version 1)
Quarter: 2013Q4

REPORT INFORMATION
  Report Type: Spontaneous
  Country: NL (occurrence: NL)
  Receive Date: 20131111
  Receipt Date: 20131111
  Transmission Date: 20140711
  Serious: Yes (Hospitalization, Other)
  Sender: FDA-Public Use
  Company Number: NL-ELI_LILLY_AND_COMPANY-NL201310010025

PATIENT
  Age: 60 Year
  Sex: Female
  Weight: 70 kg

DRUGS (4)
  1. ZYPREXA [Suspect]
     Indication: PANIC DISORDER
     Dosage: 1 DF, QD
     Route: 065
     Dates: start: 200803, end: 201212
  2. CITALOPRAM [Interacting]
     Indication: ANXIETY DISORDER
     Dosage: 40 MG, QD
     Route: 065
     Dates: start: 199612
  3. METOPROLOL SUCCINATE [Interacting]
     Indication: PRODUCT USED FOR UNKNOWN INDICATION
     Dosage: 40 MG, QD
     Route: 065
     Dates: start: 200809
  4. METOPROLOL SUCCINATE [Interacting]
     Dosage: 20 MG, QD
     Route: 065

REACTIONS (5)
  - Loss of consciousness [Unknown]
  - Head injury [Unknown]
  - Petit mal epilepsy [Unknown]
  - Off label use [Unknown]
  - Drug interaction [Unknown]
